FAERS Safety Report 11725367 (Version 1)
Quarter: 2015Q4

REPORT INFORMATION
  Report Type: Spontaneous
  Country: US (occurrence: US)
  Receive Date: 20151110
  Receipt Date: 20151110
  Transmission Date: 20160304
  Serious: No
  Sender: FDA-Public Use
  Company Number: US-ELI_LILLY_AND_COMPANY-US201109007674

PATIENT
  Sex: Female

DRUGS (1)
  1. FORTEO [Suspect]
     Active Substance: TERIPARATIDE
     Indication: OSTEOPOROSIS
     Dosage: UNK, UNKNOWN
     Route: 065

REACTIONS (9)
  - Arthralgia [Recovered/Resolved]
  - Hearing impaired [Unknown]
  - Nervousness [Unknown]
  - Pain in extremity [Recovered/Resolved]
  - Body height decreased [Unknown]
  - Pain [Unknown]
  - Intentional product misuse [Unknown]
  - Malaise [Unknown]
  - Hypersensitivity [Unknown]
